FAERS Safety Report 19861199 (Version 3)
Quarter: 2021Q4

REPORT INFORMATION
  Report Type: Spontaneous
  Country: CA (occurrence: CA)
  Receive Date: 20210920
  Receipt Date: 20211208
  Transmission Date: 20220303
  Serious: Yes (Other)
  Sender: FDA-Public Use
  Company Number: CA-PFIZER INC-2020450692

PATIENT
  Age: 59 Year
  Sex: Male
  Weight: 113.4 kg

DRUGS (3)
  1. INLYTA [Suspect]
     Active Substance: AXITINIB
     Indication: Renal cancer metastatic
     Dosage: 5 MG, 2X/DAY
     Route: 048
     Dates: start: 20201120
  2. INLYTA [Suspect]
     Active Substance: AXITINIB
     Dosage: 3MG, 2X/DAY
     Route: 048
     Dates: start: 20211125
  3. KEYTRUDA [Concomitant]
     Active Substance: PEMBROLIZUMAB
     Dosage: UNK

REACTIONS (3)
  - Autoimmune disorder [Unknown]
  - Loss of personal independence in daily activities [Unknown]
  - Off label use [Unknown]

NARRATIVE: CASE EVENT DATE: 20201120
